FAERS Safety Report 23592019 (Version 2)
Quarter: 2024Q1

REPORT INFORMATION
  Report Type: Spontaneous
  Country: CA (occurrence: CA)
  Receive Date: 20240304
  Receipt Date: 20240327
  Transmission Date: 20240409
  Serious: No
  Sender: FDA-Public Use
  Company Number: CA-PFIZER INC-202300292489

PATIENT
  Age: 16 Year
  Sex: Female

DRUGS (1)
  1. ABRILADA [Suspect]
     Active Substance: ADALIMUMAB-AFZB
     Indication: Hidradenitis
     Dosage: 160 MG WEEK 0:160MG, WEEK 2:80MG THEN 40 MG EVERY OTHER WEEK.
     Route: 058
     Dates: start: 20231024

REACTIONS (5)
  - Off label use [Unknown]
  - Product use issue [Unknown]
  - Nail avulsion [Unknown]
  - Device issue [Unknown]
  - Injection site pain [Unknown]
